FAERS Safety Report 14140794 (Version 1)
Quarter: 2017Q4

REPORT INFORMATION
  Report Type: Spontaneous
  Country: CN (occurrence: CN)
  Receive Date: 20171030
  Receipt Date: 20171030
  Transmission Date: 20180321
  Serious: Yes (Death)
  Sender: FDA-Public Use
  Company Number: CN-009507513-1710CHN013594

PATIENT
  Age: 52 Year
  Sex: Female

DRUGS (2)
  1. POSACONAZOLE [Suspect]
     Active Substance: POSACONAZOLE
     Indication: MUCORMYCOSIS
  2. POSACONAZOLE [Suspect]
     Active Substance: POSACONAZOLE
     Indication: VULVAL DISORDER
     Dosage: UNK
     Route: 048

REACTIONS (1)
  - Drug ineffective [Fatal]
